FAERS Safety Report 20735658 (Version 2)
Quarter: 2022Q3

REPORT INFORMATION
  Report Type: Spontaneous
  Country: US (occurrence: US)
  Receive Date: 20220421
  Receipt Date: 20220822
  Transmission Date: 20221026
  Serious: No
  Sender: FDA-Public Use
  Company Number: US-BRISTOL-MYERS SQUIBB COMPANY-2022-014792

PATIENT
  Age: 74 Year
  Sex: Female

DRUGS (2)
  1. REVLIMID [Suspect]
     Active Substance: LENALIDOMIDE
     Indication: Plasma cell myeloma
     Dosage: FREQUENCY; 14 DAYS ON AND 7 DAYS OFF?EXPIRATION DATE :  31-JAN-2024 FOR BATCH NUMBER : A3572A
     Route: 048
     Dates: start: 20220111
  2. VELCADE [Suspect]
     Active Substance: BORTEZOMIB
     Indication: Product used for unknown indication
     Route: 065

REACTIONS (5)
  - Constipation [Unknown]
  - Dry skin [Unknown]
  - Gastric disorder [Unknown]
  - Fatigue [Unknown]
  - Pain [Unknown]
